FAERS Safety Report 24381264 (Version 1)
Quarter: 2024Q4

REPORT INFORMATION
  Report Type: Spontaneous
  Country: US (occurrence: US)
  Receive Date: 20241001
  Receipt Date: 20241001
  Transmission Date: 20250114
  Serious: Yes (Death, Other)
  Sender: RANBAXY
  Company Number: US-SUN PHARMACEUTICAL INDUSTRIES LTD-2024R1-470448

PATIENT
  Age: 52 Year
  Sex: Female

DRUGS (1)
  1. EPOPROSTENOL [Suspect]
     Active Substance: EPOPROSTENOL
     Indication: Pulmonary arterial hypertension
     Dosage: UNK
     Route: 042

REACTIONS (5)
  - Cardiac failure [Fatal]
  - Chronic respiratory failure [Fatal]
  - Interstitial lung disease [Fatal]
  - Muscle hypertrophy [Fatal]
  - Therapy non-responder [Fatal]
